FAERS Safety Report 12240396 (Version 2)
Quarter: 2016Q2

REPORT INFORMATION
  Report Type: Spontaneous
  Country: IL (occurrence: IL)
  Receive Date: 20160405
  Receipt Date: 20160407
  Transmission Date: 20160815
  Serious: Yes (Hospitalization, Other)
  Sender: FDA-Public Use
  Company Number: IL-009507513-1602ISR009427

PATIENT
  Age: 70 Year
  Sex: Male

DRUGS (6)
  1. PEMBROLIZUMAB. [Suspect]
     Active Substance: PEMBROLIZUMAB
     Indication: MALIGNANT MELANOMA
     Dosage: UNK, Q3W
     Dates: start: 20150420, end: 20150511
  2. CARDILOC [Concomitant]
     Active Substance: BISOPROLOL FUMARATE
     Dosage: 2.5 MG, QD
     Route: 048
  3. ASPIRIN. [Concomitant]
     Active Substance: ASPIRIN
     Dosage: 100 MG, QD
     Route: 048
  4. SIMVACOR [Concomitant]
     Active Substance: SIMVASTATIN
     Dosage: 20 MG, QPM
     Route: 048
  5. GLUCOPHAGE [Concomitant]
     Active Substance: METFORMIN HYDROCHLORIDE
     Dosage: 850 MG, BID; FORMULATION: CAPLET
     Route: 048
  6. EZETROL 10MG TABLETS [Concomitant]
     Active Substance: EZETIMIBE
     Dosage: 10 MG, QD
     Route: 048

REACTIONS (30)
  - Myasthenia gravis [Recovering/Resolving]
  - Protein total decreased [Unknown]
  - Neutrophil percentage increased [Unknown]
  - Blood osmolarity increased [Unknown]
  - Malignant neoplasm progression [Unknown]
  - Blood glucose increased [Unknown]
  - White blood cell count increased [Unknown]
  - Lymphocyte percentage decreased [Unknown]
  - Myopathy [Recovering/Resolving]
  - Hepatic function abnormal [Unknown]
  - Blood chloride decreased [Recovered/Resolved]
  - Globulins decreased [Unknown]
  - Lymphocyte count decreased [Unknown]
  - Monocyte count increased [Recovered/Resolved]
  - Protein total decreased [Recovered/Resolved]
  - Aspartate aminotransferase increased [Unknown]
  - Blood albumin decreased [Unknown]
  - Globulins decreased [Recovered/Resolved]
  - Mean platelet volume increased [Recovered/Resolved]
  - Neutrophil count increased [Recovered/Resolved]
  - Blood osmolarity increased [Recovered/Resolved]
  - Gamma-glutamyltransferase increased [Unknown]
  - Haematocrit increased [Recovered/Resolved]
  - Neutrophil count increased [Unknown]
  - Blood lactate dehydrogenase increased [Unknown]
  - Alanine aminotransferase increased [Unknown]
  - Calcium ionised increased [Unknown]
  - Blood lactic acid increased [Unknown]
  - Protein total decreased [Unknown]
  - Transferrin decreased [Unknown]

NARRATIVE: CASE EVENT DATE: 2015
